FAERS Safety Report 8876359 (Version 1)
Quarter: 2012Q4

REPORT INFORMATION
  Report Type: 
  Country: CA (occurrence: CA)
  Receive Date: 20121031
  Receipt Date: 20121031
  Transmission Date: 20130627
  Serious: Yes (Other)
  Sender: FDA-Public Use
  Company Number: PHHY2005CA007804

PATIENT
  Sex: Male

DRUGS (5)
  1. SANDOSTATIN LAR [Suspect]
     Indication: HEPATIC NEOPLASM MALIGNANT
     Dosage: 20 mg, once a month
     Route: 030
     Dates: start: 20040510
  2. TENORMIN [Concomitant]
  3. CLONAZEPAM [Concomitant]
  4. HYZAAR [Concomitant]
  5. VALIUM [Concomitant]

REACTIONS (15)
  - Fall [Unknown]
  - Hypertension [Unknown]
  - Blood pressure diastolic decreased [Unknown]
  - Scab [Unknown]
  - Skin irritation [Unknown]
  - Tremor [Unknown]
  - Hyperglycaemia [Unknown]
  - Blood glucose increased [Unknown]
  - Hypoglycaemia [Unknown]
  - Constipation [Unknown]
  - Fatigue [Unknown]
  - Asthenia [Unknown]
  - Bradycardia [Unknown]
  - Heart rate decreased [Unknown]
  - Dizziness [Unknown]
